FAERS Safety Report 8945152 (Version 1)
Quarter: 2012Q4

REPORT INFORMATION
  Report Type: 
  Country: US (occurrence: US)
  Receive Date: 20121204
  Receipt Date: 20121204
  Transmission Date: 20130627
  Serious: No
  Sender: FDA-Public Use
  Company Number: US-AMGEN-USASP2012065035

PATIENT
  Age: 47 Year
  Sex: Male
  Weight: 96.15 kg

DRUGS (5)
  1. ENBREL [Suspect]
     Indication: PSORIATIC ARTHROPATHY
     Dosage: 50 mg, qwk
     Route: 058
     Dates: start: 20080414
  2. ENBREL [Suspect]
     Indication: PSORIASIS
  3. PROTOPIC [Concomitant]
     Indication: PSORIASIS
     Dosage: bid PRN
     Route: 061
     Dates: start: 20110124
  4. CYCLOBENZAPRINE [Concomitant]
     Indication: LIMB DISCOMFORT
     Dosage: 10 mg, prn
     Route: 048
     Dates: start: 201111
  5. NABUMETONE [Concomitant]
     Indication: LIMB DISCOMFORT
     Dosage: 750 mg, prn
     Route: 048
     Dates: start: 201111

REACTIONS (1)
  - Gingival recession [Not Recovered/Not Resolved]
